FAERS Safety Report 12517967 (Version 1)
Quarter: 2016Q2

REPORT INFORMATION
  Report Type: Spontaneous
  Country: FR (occurrence: FR)
  Receive Date: 20160630
  Receipt Date: 20160630
  Transmission Date: 20160815
  Serious: Yes (Other)
  Sender: FDA-Public Use
  Company Number: FR-BAYER-2016-051033

PATIENT
  Age: 46 Year
  Sex: Female
  Weight: 60 kg

DRUGS (1)
  1. MIRENA [Suspect]
     Active Substance: LEVONORGESTREL
     Dosage: UNK
     Route: 015
     Dates: end: 20151112

REACTIONS (9)
  - Procedural pain [Unknown]
  - Fallopian tube perforation [Recovered/Resolved]
  - Device dislocation [Recovered/Resolved]
  - Medical device monitoring error [Unknown]
  - Intentional device misuse [Unknown]
  - Post procedural haemorrhage [Unknown]
  - Amenorrhoea [Unknown]
  - Device breakage [Unknown]
  - Fallopian tube disorder [Unknown]

NARRATIVE: CASE EVENT DATE: 20150929
